FAERS Safety Report 16485759 (Version 5)
Quarter: 2020Q3

REPORT INFORMATION
  Report Type: Report from Study
  Country: US (occurrence: US)
  Receive Date: 20190627
  Receipt Date: 20200901
  Transmission Date: 20201102
  Serious: Yes (Hospitalization, Other)
  Sender: FDA-Public Use
  Company Number: US-SA-2019SA174733

PATIENT

DRUGS (1)
  1. ELIGLUSTAT. [Suspect]
     Active Substance: ELIGLUSTAT
     Indication: GAUCHER^S DISEASE
     Dosage: 84 MG, BID (1 TABLET)
     Route: 048
     Dates: start: 20181123, end: 20190826

REACTIONS (5)
  - Wound infection staphylococcal [Unknown]
  - Road traffic accident [Unknown]
  - Cast application [Unknown]
  - Liver iron concentration increased [Unknown]
  - Blood pressure increased [Unknown]

NARRATIVE: CASE EVENT DATE: 201907
